FAERS Safety Report 17450888 (Version 1)
Quarter: 2020Q1

REPORT INFORMATION
  Report Type: Spontaneous
  Country: US (occurrence: US)
  Receive Date: 20200210
  Receipt Date: 20200210
  Transmission Date: 20200409
  Serious: No
  Sender: FDA-Public Use
  Company Number: None

PATIENT
  Sex: Female

DRUGS (1)
  1. GENGRAF [Suspect]
     Active Substance: CYCLOSPORINE
     Indication: RENAL TRANSPLANT
     Dosage: ?          OTHER FREQUENCY:EVERY EVENING;?
     Route: 048
     Dates: start: 20191026

REACTIONS (2)
  - Blood magnesium decreased [None]
  - Arthralgia [None]
